FAERS Safety Report 7435797-X (Version None)
Quarter: 2011Q2

REPORT INFORMATION
  Report Type: 
  Country: None (occurrence: None)
  Receive Date: 20110418
  Receipt Date: 20110401
  Transmission Date: 20111010
  Serious: Yes (Death)
  Sender: FDA-Public Use
  Company Number: AE 2011-154

PATIENT
  Age: 63 Year
  Sex: Male

DRUGS (1)
  1. CLOZAPINE [Suspect]

REACTIONS (7)
  - FAECALOMA [None]
  - CONSTIPATION [None]
  - ABDOMINAL DISTENSION [None]
  - HYPOTENSION [None]
  - INFERIOR VENA CAVA SYNDROME [None]
  - FALL [None]
  - MULTI-ORGAN FAILURE [None]
